FAERS Safety Report 7860486-7 (Version None)
Quarter: 2011Q4

REPORT INFORMATION
  Report Type: 
  Country: None (occurrence: None)
  Receive Date: 20111027
  Receipt Date: 20111018
  Transmission Date: 20120403
  Serious: Yes (Other)
  Sender: FDA-Public Use
  Company Number: US-ASTRAZENECA-2011SE49243

PATIENT
  Age: 48 Year
  Sex: Female
  Weight: 78.5 kg

DRUGS (4)
  1. NAPROXEN [Concomitant]
     Indication: ARTHRALGIA
     Route: 048
     Dates: start: 20090901, end: 20091101
  2. ARIMIDEX [Concomitant]
     Route: 048
  3. NEXIUM [Suspect]
     Indication: GASTROOESOPHAGEAL REFLUX DISEASE
     Route: 048
     Dates: start: 20090827
  4. XANAX [Concomitant]
     Indication: ANXIETY
     Route: 048
     Dates: start: 20040317

REACTIONS (1)
  - BREAST CANCER METASTATIC [None]
